FAERS Safety Report 12971042 (Version 4)
Quarter: 2018Q4

REPORT INFORMATION
  Report Type: Spontaneous
  Country: US (occurrence: US)
  Receive Date: 20161123
  Receipt Date: 20181221
  Transmission Date: 20190204
  Serious: Yes (Other)
  Sender: FDA-Public Use
  Company Number: US-JAZZ-2016-US-018872

PATIENT
  Sex: Male

DRUGS (19)
  1. HYDROCHLOROTHIAZIDE. [Concomitant]
     Active Substance: HYDROCHLOROTHIAZIDE
  2. VALTREX [Concomitant]
     Active Substance: VALACYCLOVIR HYDROCHLORIDE
  3. VIAGRA [Concomitant]
     Active Substance: SILDENAFIL CITRATE
  4. CYCLOBENZAPRINE. [Concomitant]
     Active Substance: CYCLOBENZAPRINE
  5. IBUPROFEN. [Concomitant]
     Active Substance: IBUPROFEN
  6. MOBIC [Concomitant]
     Active Substance: MELOXICAM
  7. LINZESS [Concomitant]
     Active Substance: LINACLOTIDE
  8. XYREM [Suspect]
     Active Substance: SODIUM OXYBATE
     Indication: CATAPLEXY
     Dosage: 3 G, BID
     Route: 048
     Dates: start: 201504, end: 201505
  9. XYREM [Suspect]
     Active Substance: SODIUM OXYBATE
     Dosage: 4.5 G, BID
     Route: 048
     Dates: start: 201505
  10. KEPPRA [Concomitant]
     Active Substance: LEVETIRACETAM
  11. DICLOFENAC POTASSIUM. [Concomitant]
     Active Substance: DICLOFENAC POTASSIUM
  12. SILDENAFIL. [Concomitant]
     Active Substance: SILDENAFIL
  13. TOPAMAX [Concomitant]
     Active Substance: TOPIRAMATE
  14. ZOLOFT [Concomitant]
     Active Substance: SERTRALINE HYDROCHLORIDE
  15. XYREM [Suspect]
     Active Substance: SODIUM OXYBATE
     Indication: NARCOLEPSY
     Dosage: 2.25 G, BID
     Route: 048
     Dates: start: 201503, end: 201504
  16. ALBUTEROL SULFATE. [Concomitant]
     Active Substance: ALBUTEROL SULFATE
  17. TRAMADOL. [Concomitant]
     Active Substance: TRAMADOL
  18. ZYRTEC [Concomitant]
     Active Substance: CETIRIZINE HYDROCHLORIDE
  19. MODAFINIL. [Concomitant]
     Active Substance: MODAFINIL

REACTIONS (6)
  - Dizziness [Not Recovered/Not Resolved]
  - Depression [Recovering/Resolving]
  - Anxiety [Unknown]
  - Hypertension [Not Recovered/Not Resolved]
  - Suicidal ideation [Recovered/Resolved]
  - Chronic obstructive pulmonary disease [Unknown]

NARRATIVE: CASE EVENT DATE: 2016
